FAERS Safety Report 11775324 (Version 21)
Quarter: 2018Q2

REPORT INFORMATION
  Report Type: Spontaneous
  Country: US (occurrence: US)
  Receive Date: 20151125
  Receipt Date: 20180607
  Transmission Date: 20180711
  Serious: Yes (Hospitalization)
  Sender: FDA-Public Use
  Company Number: US-ACTELION PHARMACEUTICALS US, INC.-A-NJ2015-120449

PATIENT
  Age: 39 Year
  Sex: Female
  Weight: 81.18 kg

DRUGS (8)
  1. VELETRI [Suspect]
     Active Substance: EPOPROSTENOL
     Dosage: 45 NG/KG, PER MIN
     Route: 042
  2. SILDENAFIL. [Concomitant]
     Active Substance: SILDENAFIL
     Indication: PULMONARY ARTERIAL HYPERTENSION
  3. VELETRI [Suspect]
     Active Substance: EPOPROSTENOL
     Indication: PULMONARY ARTERIAL HYPERTENSION
     Dosage: 30 NG/KG, PER MIN
     Route: 042
     Dates: start: 20111104
  4. XARELTO [Concomitant]
     Active Substance: RIVAROXABAN
  5. ADCIRCA [Concomitant]
     Active Substance: TADALAFIL
  6. ELIQUIS [Concomitant]
     Active Substance: APIXABAN
  7. ADEMPAS [Suspect]
     Active Substance: RIOCIGUAT
     Indication: PRODUCT USED FOR UNKNOWN INDICATION
     Route: 065
  8. LETAIRIS [Suspect]
     Active Substance: AMBRISENTAN
     Indication: PRODUCT USED FOR UNKNOWN INDICATION
     Dosage: 10 MG, QD
     Route: 065
     Dates: start: 20120420

REACTIONS (29)
  - Device related infection [Unknown]
  - Sepsis [Unknown]
  - Catheter management [Unknown]
  - Cough [Unknown]
  - Pain in extremity [Not Recovered/Not Resolved]
  - Dyspnoea exertional [Not Recovered/Not Resolved]
  - Condition aggravated [Unknown]
  - Constipation [Unknown]
  - Otorrhoea [Unknown]
  - Nasopharyngitis [Unknown]
  - Erythema [Unknown]
  - Fluid retention [Unknown]
  - Influenza [Unknown]
  - Diarrhoea [Unknown]
  - Device occlusion [Unknown]
  - Myalgia [Unknown]
  - Flushing [Not Recovered/Not Resolved]
  - Rash macular [Unknown]
  - Ear discomfort [Unknown]
  - Dyspepsia [Not Recovered/Not Resolved]
  - Dyspnoea [Recovering/Resolving]
  - Abdominal distension [Unknown]
  - Pain in jaw [Not Recovered/Not Resolved]
  - Hyperaesthesia [Unknown]
  - Nausea [Unknown]
  - Fatigue [Recovered/Resolved]
  - Catheter site discharge [Unknown]
  - Catheter site infection [Unknown]
  - Feeling cold [Unknown]

NARRATIVE: CASE EVENT DATE: 20171012
